FAERS Safety Report 4315539-7 (Version None)
Quarter: 2004Q1

REPORT INFORMATION
  Report Type: 
  Country: None (occurrence: None)
  Receive Date: 20040311
  Receipt Date: 20030910
  Transmission Date: 20041129
  Serious: Yes (Hospitalization)
  Sender: FDA-Public Use
  Company Number: US-ROCHE-346704

PATIENT
  Age: 22 Year
  Sex: Male
  Weight: 64.6 kg

DRUGS (1)
  1. ACCUTANE [Suspect]
     Indication: DRUG USE FOR UNKNOWN INDICATION
     Route: 048

REACTIONS (17)
  - DELUSION [None]
  - DEPENDENT PERSONALITY DISORDER [None]
  - DEPRESSION [None]
  - DIZZINESS [None]
  - FACET JOINT SYNDROME [None]
  - HEADACHE [None]
  - HOMICIDAL IDEATION [None]
  - INJURY [None]
  - LABORATORY TEST ABNORMAL [None]
  - MIGRAINE [None]
  - NERVOUS SYSTEM DISORDER [None]
  - NEURITIS [None]
  - PARANOIA [None]
  - REFUSAL OF TREATMENT BY PATIENT [None]
  - SCHIZOTYPAL PERSONALITY DISORDER [None]
  - SCIATICA [None]
  - SPINAL CORD DISORDER [None]
